FAERS Safety Report 9038169 (Version 1)
Quarter: 2013Q1

REPORT INFORMATION
  Report Type: Spontaneous
  Country: US (occurrence: US)
  Receive Date: 20130129
  Receipt Date: 20130129
  Transmission Date: 20140127
  Serious: No
  Sender: FDA-Public Use
  Company Number: US-GLAXOSMITHKLINE-A0973628A

PATIENT
  Age: 17 Year
  Sex: Female

DRUGS (2)
  1. WELLBUTRIN XL [Suspect]
     Indication: MAJOR DEPRESSION
     Route: 048
     Dates: start: 201201, end: 20120215
  2. NONE [Concomitant]

REACTIONS (1)
  - Tinnitus [Unknown]
